FAERS Safety Report 15222133 (Version 4)
Quarter: 2018Q3

REPORT INFORMATION
  Report Type: Spontaneous
  Country: GB (occurrence: GB)
  Receive Date: 20180731
  Receipt Date: 20180803
  Transmission Date: 20181010
  Serious: Yes (Hospitalization)
  Sender: FDA-Public Use
  Company Number: PHHY2018GB005233

PATIENT

DRUGS (5)
  1. PREDNISOLONE. [Suspect]
     Active Substance: PREDNISOLONE
     Indication: NEUROMYELITIS OPTICA SPECTRUM DISORDER
     Dosage: UNK
     Route: 005
  2. AZATHIOPRINE. [Concomitant]
     Active Substance: AZATHIOPRINE
     Indication: NEUROMYELITIS OPTICA SPECTRUM DISORDER
     Route: 065
  3. AZATHIOPRINE. [Concomitant]
     Active Substance: AZATHIOPRINE
  4. RITUXIMAB. [Suspect]
     Active Substance: RITUXIMAB
     Indication: NEUROMYELITIS OPTICA SPECTRUM DISORDER
     Dosage: 2 G, UNK (EVERY 6 MONTHS)
     Route: 041
     Dates: start: 2016
  5. MYCOPHENOLATE MOFETIL. [Suspect]
     Active Substance: MYCOPHENOLATE MOFETIL
     Indication: NEUROMYELITIS OPTICA SPECTRUM DISORDER
     Route: 065

REACTIONS (5)
  - Product use in unapproved indication [Unknown]
  - Pneumonia legionella [Recovered/Resolved]
  - Gastric ulcer [Unknown]
  - Lower respiratory tract infection [Unknown]
  - Hypogammaglobulinaemia [Not Recovered/Not Resolved]
